FAERS Safety Report 20033182 (Version 2)
Quarter: 2021Q4

REPORT INFORMATION
  Report Type: Spontaneous
  Country: AU (occurrence: AU)
  Receive Date: 20211104
  Receipt Date: 20211122
  Transmission Date: 20220303
  Serious: Yes (Other)
  Sender: FDA-Public Use
  Company Number: AU-JAZZ-2021-AU-020344

PATIENT
  Age: 58 Year
  Sex: Male
  Weight: 86 kg

DRUGS (1)
  1. ZEPZELCA [Suspect]
     Active Substance: LURBINECTEDIN
     Indication: Small cell lung cancer
     Dosage: 6.2 MILLIGRAM Q3W
     Route: 042
     Dates: start: 20210422

REACTIONS (1)
  - Thrombophlebitis [Unknown]

NARRATIVE: CASE EVENT DATE: 20210601
